FAERS Safety Report 17484991 (Version 1)
Quarter: 2020Q1

REPORT INFORMATION
  Report Type: Other
  Country: IT (occurrence: IT)
  Receive Date: 20200302
  Receipt Date: 20200302
  Transmission Date: 20200409
  Serious: Yes (Other)
  Sender: FDA-Public Use
  Company Number: IT-INCYTE CORPORATION-2020IN001521

PATIENT

DRUGS (2)
  1. JAKAVI [Suspect]
     Active Substance: RUXOLITINIB
     Indication: PRIMARY MYELOFIBROSIS
     Dosage: 30 MG, QD
     Route: 048
     Dates: start: 20160112, end: 20190506
  2. ONCO CARBIDE [Concomitant]
     Active Substance: HYDROXYUREA
     Indication: PRIMARY MYELOFIBROSIS
     Dosage: 500 MG, PRN (AS NECESSARY)
     Route: 065
     Dates: start: 20120906, end: 20160111

REACTIONS (1)
  - Squamous cell carcinoma [Not Recovered/Not Resolved]

NARRATIVE: CASE EVENT DATE: 20180920
